FAERS Safety Report 4746529-8 (Version None)
Quarter: 2005Q3

REPORT INFORMATION
  Report Type: 
  Country: None (occurrence: None)
  Receive Date: 20050815
  Receipt Date: 20050727
  Transmission Date: 20060218
  Serious: Yes (Other)
  Sender: FDA-Public Use
  Company Number: ENTC2005-0227

PATIENT
  Age: 73 Year
  Sex: Male

DRUGS (6)
  1. STALEVO 100 [Suspect]
     Indication: PARKINSON'S DISEASE
     Dosage: 300 MG (100 MG, 3 IN 1 D), ORAL/6 MONTHS AGO
     Route: 048
     Dates: end: 20050719
  2. SELEGILINE HCL [Concomitant]
  3. LOSARTAN POTASSIUM [Concomitant]
  4. AMIODARONE [Concomitant]
  5. LORAX [Concomitant]
  6. PROLOPA [Concomitant]

REACTIONS (3)
  - BENIGN PROSTATIC HYPERPLASIA [None]
  - HALLUCINATION [None]
  - HYPOTHYROIDISM [None]
